FAERS Safety Report 6070442-X (Version None)
Quarter: 2009Q1

REPORT INFORMATION
  Report Type: 
  Country: None (occurrence: None)
  Receive Date: 20090204
  Receipt Date: 20090123
  Transmission Date: 20090719
  Serious: Yes (Other)
  Sender: FDA-Public Use
  Company Number: 036407

PATIENT
  Age: 31 Year
  Sex: Male

DRUGS (2)
  1. ANTABUSE [Suspect]
     Indication: DRUG DEPENDENCE
     Dosage: 250 MG/DAY,
  2. COCAINE(COCAINE) [Suspect]

REACTIONS (17)
  - ANXIETY [None]
  - DELUSION [None]
  - DRUG ABUSE [None]
  - DRUG INTERACTION [None]
  - DYSPNOEA [None]
  - FATIGUE [None]
  - FEAR [None]
  - HEART RATE INCREASED [None]
  - HYPERACUSIS [None]
  - HYPERHIDROSIS [None]
  - ILLUSION [None]
  - INSOMNIA [None]
  - MALAISE [None]
  - PARAESTHESIA [None]
  - PARANOIA [None]
  - SPEECH DISORDER [None]
  - TREMOR [None]
